FAERS Safety Report 6748181-9 (Version None)
Quarter: 2010Q2

REPORT INFORMATION
  Report Type: 
  Country: None (occurrence: None)
  Receive Date: 20100531
  Receipt Date: 20100526
  Transmission Date: 20101027
  Serious: Yes (Life-Threatening, Other)
  Sender: FDA-Public Use
  Company Number: PHHY2010FR34009

PATIENT
  Sex: Female

DRUGS (5)
  1. EXELON [Suspect]
     Indication: DEMENTIA ALZHEIMER'S TYPE
     Dosage: 9.5 MG/24H, UNK
     Route: 062
     Dates: start: 20090813
  2. OXYCONTIN [Suspect]
     Indication: PAIN
     Dosage: 10 MG, DAILY
     Dates: start: 20091102
  3. ARIXTRA [Suspect]
     Indication: THROMBOSIS PROPHYLAXIS
     Dosage: 2.5 MG, QD
     Dates: start: 20091109, end: 20091126
  4. KARDEGIC [Concomitant]
     Indication: ARTERITIS
     Dosage: 160 MG, QD
     Dates: start: 20090813, end: 20091126
  5. LEVOTHYROXINE SODIUM [Concomitant]
     Dosage: 0.1 MG, UNK

REACTIONS (4)
  - AUTONOMIC NERVOUS SYSTEM IMBALANCE [None]
  - DIVERTICULUM [None]
  - HAEMORRHAGE [None]
  - RECTAL HAEMORRHAGE [None]
